FAERS Safety Report 4854794-1 (Version None)
Quarter: 2005Q4

REPORT INFORMATION
  Report Type: 
  Country: None (occurrence: None)
  Receive Date: 20051214
  Receipt Date: 20051214
  Transmission Date: 20060501
  Serious: Yes (Hospitalization)
  Sender: FDA-Public Use
  Company Number: None

PATIENT
  Sex: Female
  Weight: 70.5 kg

DRUGS (2)
  1. ENOXAPARIN SODIUM [Suspect]
     Indication: DEEP VEIN THROMBOSIS
     Dosage: 60 MG BID SQ
     Route: 058
  2. WARFARIN [Suspect]
     Indication: DEEP VEIN THROMBOSIS
     Dosage: 5 MG QHS PO
     Route: 048

REACTIONS (1)
  - HAEMARTHROSIS [None]
